FAERS Safety Report 6130534-3 (Version None)
Quarter: 2009Q1

REPORT INFORMATION
  Report Type: 
  Country: None (occurrence: None)
  Receive Date: 20090323
  Receipt Date: 20090312
  Transmission Date: 20090719
  Serious: Yes (Hospitalization)
  Sender: FDA-Public Use
  Company Number: 8034976

PATIENT
  Age: 51 Year
  Sex: Female
  Weight: 68.18 kg

DRUGS (19)
  1. KEPPRA [Suspect]
     Indication: CONVULSION
     Dosage: 1000 MG 2/D PO
     Route: 048
     Dates: start: 20080601, end: 20080717
  2. KEPPRA [Suspect]
  3. KEPPRA [Suspect]
     Indication: CONVULSION
     Dosage: 2000 MG 2/D PO
     Route: 048
     Dates: start: 20080717
  4. KEPPRA [Suspect]
     Indication: CONVULSION
     Dosage: 1500 MG /D PO
     Route: 048
     Dates: start: 20080601, end: 20090311
  5. VASOTEC [Concomitant]
  6. PROTONIX [Concomitant]
  7. PRILOSEC [Concomitant]
  8. KLONOPIN [Concomitant]
  9. PERCOCET [Concomitant]
  10. FLEXERIL [Concomitant]
  11. TIGAN [Concomitant]
  12. PREDNISONE [Concomitant]
  13. BTREX [Concomitant]
  14. IMODIUM [Concomitant]
  15. NEURONTIN [Concomitant]
  16. LAMICTAL [Concomitant]
  17. INDERAL [Concomitant]
  18. NITROGLYCERIN [Concomitant]
  19. POTASSIUM CHLORIDE [Concomitant]

REACTIONS (11)
  - ABDOMINAL PAIN UPPER [None]
  - AMNESIA [None]
  - ANXIETY [None]
  - BLOOD URINE PRESENT [None]
  - CONVULSION [None]
  - DIARRHOEA [None]
  - FOOD INTOLERANCE [None]
  - GASTRIC ULCER HAEMORRHAGE [None]
  - INFECTION [None]
  - IRRITABILITY [None]
  - NAUSEA [None]
